FAERS Safety Report 21208779 (Version 1)
Quarter: 2022Q3

REPORT INFORMATION
  Report Type: Spontaneous
  Country: US (occurrence: US)
  Receive Date: 20220812
  Receipt Date: 20220812
  Transmission Date: 20221026
  Serious: Yes (Hospitalization, Other)
  Sender: FDA-Public Use
  Company Number: US-CIPHER-2022-US-000474

PATIENT
  Age: 55 Year
  Sex: Male
  Weight: 108.9 kg

DRUGS (6)
  1. TRAMADOL HYDROCHLORIDE [Suspect]
     Active Substance: TRAMADOL HYDROCHLORIDE
     Dosage: 5-15 TABLETS
  2. ALPRAZOLAM [Suspect]
     Active Substance: ALPRAZOLAM
     Dosage: 30 TABLETS
  3. LORAZEPAM [Suspect]
     Active Substance: LORAZEPAM
     Dosage: 26 TABLETS
  4. ACETAMINOPHEN AND CODEINE [Suspect]
     Active Substance: ACETAMINOPHEN\CODEINE PHOSPHATE
     Dosage: 5-15 TABLETS
  5. DEXTROSE [Concomitant]
     Active Substance: DEXTROSE
     Route: 042
  6. dextrose 5%-0.45% sodium chloride [Concomitant]
     Dosage: 125 ML/HR
     Route: 042

REACTIONS (5)
  - Overdose [Unknown]
  - Somnolence [Unknown]
  - Hypoglycaemia [Unknown]
  - Hypertension [Unknown]
  - Suicidal ideation [Unknown]
